FAERS Safety Report 6326911-8 (Version None)
Quarter: 2009Q3

REPORT INFORMATION
  Report Type: 
  Country: None (occurrence: None)
  Receive Date: 20090825
  Receipt Date: 20090813
  Transmission Date: 20100115
  Serious: Yes (Life-Threatening, Hospitalization)
  Sender: FDA-Public Use
  Company Number: FR-PFIZER INC-2009254136

PATIENT
  Age: 83 Year

DRUGS (4)
  1. ALDACTONE [Suspect]
     Indication: HYPERTENSION
     Dosage: 25 MG, 2X/DAY
     Route: 048
     Dates: end: 20090714
  2. ALDACTAZINE [Interacting]
     Indication: HYPERTENSION
     Dosage: 1 DF, 1X/DAY
     Route: 048
     Dates: end: 20090714
  3. TAREG [Interacting]
     Indication: HYPERTENSION
     Dosage: 160 MG, 1X/DAY
     Route: 048
     Dates: end: 20090714
  4. DIFFU K [Interacting]
     Dosage: 6 DF, 1X/DAY
     Route: 048
     Dates: end: 20090714

REACTIONS (5)
  - BRADYCARDIA [None]
  - DRUG INTERACTION [None]
  - FALL [None]
  - HYPERKALAEMIA [None]
  - MALAISE [None]
